FAERS Safety Report 15893334 (Version 4)
Quarter: 2019Q2

REPORT INFORMATION
  Report Type: Spontaneous
  Country: CA (occurrence: CA)
  Receive Date: 20190130
  Receipt Date: 20190613
  Transmission Date: 20190711
  Serious: Yes (Other)
  Sender: FDA-Public Use
  Company Number: CA-CELLTRION INC.-2018CA024980

PATIENT

DRUGS (19)
  1. INFLECTRA [Suspect]
     Active Substance: INFLIXIMAB-DYYB
     Dosage: 400 MG, EVERY 4 WEEKS
     Route: 042
     Dates: start: 20190223
  2. HYDROCORTISONE. [Concomitant]
     Active Substance: HYDROCORTISONE
     Dosage: 100 MG, EVERY 6 HOURS
     Route: 042
     Dates: start: 20181209
  3. HYOSCINE BUTYLBROMIDE [Concomitant]
     Active Substance: BUTYLSCOPOLAMINE BROMIDE
     Dosage: 10 MG/ 0.5 ML, 3X/DAY UNTIL 08JUN2019
     Route: 048
     Dates: start: 20181210
  4. INFLECTRA [Suspect]
     Active Substance: INFLIXIMAB-DYYB
     Dosage: 400 MG, EVERY 4 WEEKS
     Route: 042
     Dates: start: 20190422
  5. CIPROFLOXACIN. [Concomitant]
     Active Substance: CIPROFLOXACIN
     Dosage: 400 MG, 2X/DAY (Q12 HOURS)
     Route: 042
  6. PREDNISONE. [Concomitant]
     Active Substance: PREDNISONE
     Dosage: 25 MG, 1X/DAY TAPERING 5 MG WEEKLY
     Route: 048
     Dates: start: 20181028
  7. AZATHIOPRINE. [Concomitant]
     Active Substance: AZATHIOPRINE
     Dosage: 50 MG, 1X/DAY, THEN INCREASING DOSE TO 100MG OD IN TWO WEEKS
     Route: 048
  8. INFLECTRA [Suspect]
     Active Substance: INFLIXIMAB-DYYB
     Indication: COLITIS ULCERATIVE
     Dosage: 325 MG, Q 0-1-5WEEKS
     Route: 042
     Dates: start: 20181212
  9. INFLECTRA [Suspect]
     Active Substance: INFLIXIMAB-DYYB
     Dosage: 325 MG, Q 0-1-5WEEKS
     Route: 042
     Dates: start: 20190121
  10. BENADRYL [Concomitant]
     Active Substance: DIPHENHYDRAMINE HYDROCHLORIDE
     Indication: PREMEDICATION
     Dosage: 50 MG, UNK
  11. INFLECTRA [Suspect]
     Active Substance: INFLIXIMAB-DYYB
     Dosage: 325 MG, Q 0-1-5WEEKS
     Route: 042
     Dates: start: 20181219
  12. PANTOPRAZOLE [Concomitant]
     Active Substance: PANTOPRAZOLE
     Dosage: 40 MG, DAILY
     Route: 042
     Dates: start: 20181207, end: 20181214
  13. 5-ASA [Concomitant]
     Active Substance: MESALAMINE
     Dosage: 2 DF (TABS), 3X/DAY
     Dates: start: 20190114
  14. AZATHIOPRINE. [Concomitant]
     Active Substance: AZATHIOPRINE
     Indication: COLITIS
     Dosage: 50 MG, 1X/DAY, THEN INCREASING DOSE TO 100MG OD IN TWO WEEKS
     Route: 048
  15. AZATHIOPRINE. [Concomitant]
     Active Substance: AZATHIOPRINE
     Dosage: 450 MG, DAILY
     Route: 048
     Dates: start: 20190123
  16. PREDNISONE. [Concomitant]
     Active Substance: PREDNISONE
     Dosage: 40MG DAILY THEN TAPERING DOWN
     Route: 048
  17. FLAGYL [Concomitant]
     Active Substance: METRONIDAZOLE\METRONIDAZOLE HYDROCHLORIDE
     Dosage: 500 MG, 2X/DAY (Q.12 HOUR)
     Route: 042
  18. PREDNISONE. [Concomitant]
     Active Substance: PREDNISONE
     Dosage: 40 MG, DAILY, THEN TAPERING DOWN
     Route: 048
     Dates: start: 20181028
  19. PREDNISONE. [Concomitant]
     Active Substance: PREDNISONE
     Dosage: 20 MG, 1X/DAY
     Route: 048

REACTIONS (19)
  - Sensitivity to weather change [Unknown]
  - Increased appetite [Unknown]
  - Restless legs syndrome [Not Recovered/Not Resolved]
  - Arthralgia [Not Recovered/Not Resolved]
  - Rectal haemorrhage [Unknown]
  - Musculoskeletal chest pain [Unknown]
  - Arthritis [Unknown]
  - Product use issue [Unknown]
  - Loss of personal independence in daily activities [Unknown]
  - Muscle rigidity [Not Recovered/Not Resolved]
  - Cough [Unknown]
  - Myalgia [Not Recovered/Not Resolved]
  - Condition aggravated [Not Recovered/Not Resolved]
  - Drug level above therapeutic [Unknown]
  - Infusion related reaction [Unknown]
  - Therapeutic response shortened [Unknown]
  - Malaise [Unknown]
  - Product use issue [Unknown]
  - Off label use [Unknown]

NARRATIVE: CASE EVENT DATE: 20181212
